FAERS Safety Report 14427428 (Version 2)
Quarter: 2018Q2

REPORT INFORMATION
  Report Type: Spontaneous
  Country: JP (occurrence: JP)
  Receive Date: 20180123
  Receipt Date: 20180615
  Transmission Date: 20180711
  Serious: Yes (Other)
  Sender: FDA-Public Use
  Company Number: JP-TEVA-2018-JP-850438

PATIENT
  Age: 60 Year
  Sex: Male

DRUGS (1)
  1. BENDAMUSTINE HYDROCHLORIDE. [Suspect]
     Active Substance: BENDAMUSTINE HYDROCHLORIDE
     Indication: PRODUCT USED FOR UNKNOWN INDICATION
     Dosage: (CYCLIC)
     Route: 042
     Dates: start: 20170314, end: 20170315

REACTIONS (5)
  - Eyelid oedema [Unknown]
  - White blood cell count increased [Unknown]
  - Leukopenia [Recovering/Resolving]
  - Prolymphocytic leukaemia [Unknown]
  - Lymphadenopathy [Unknown]

NARRATIVE: CASE EVENT DATE: 20170321
